FAERS Safety Report 13264759 (Version 1)
Quarter: 2017Q1

REPORT INFORMATION
  Report Type: Other
  Country: IT (occurrence: IT)
  Receive Date: 20170223
  Receipt Date: 20170223
  Transmission Date: 20170428
  Serious: Yes (Other)
  Sender: FDA-Public Use
  Company Number: IT-SYMPLMED PHARMACEUTICALS-2017SYMPLMED000424

PATIENT

DRUGS (1)
  1. COVERLAM [Suspect]
     Active Substance: AMLODIPINE BESYLATE\PERINDOPRIL ARGININE
     Indication: PRODUCT USED FOR UNKNOWN INDICATION
     Dosage: 20 (10MG/5MG) TABLETS, SINGLE
     Route: 065
     Dates: start: 20170214, end: 20170214

REACTIONS (4)
  - Heart rate increased [Unknown]
  - Intentional overdose [Unknown]
  - Blood pressure increased [Unknown]
  - Suicide attempt [Unknown]

NARRATIVE: CASE EVENT DATE: 20170214
